FAERS Safety Report 12623928 (Version 2)
Quarter: 2016Q3

REPORT INFORMATION
  Report Type: Report from Study
  Country: US (occurrence: US)
  Receive Date: 20160804
  Receipt Date: 20160816
  Transmission Date: 20161109
  Serious: Yes (Other)
  Sender: FDA-Public Use
  Company Number: US-GILEAD-2016-0225193

PATIENT
  Age: 63 Year
  Sex: Female
  Weight: 55 kg

DRUGS (1)
  1. LEDIPASVIR/SOFOSBUVIR [Suspect]
     Active Substance: LEDIPASVIR\SOFOSBUVIR
     Indication: HEPATITIS C
     Dosage: 1 DF, UNK
     Route: 048
     Dates: start: 20160710

REACTIONS (10)
  - Diabetes mellitus [Unknown]
  - Asthenia [Unknown]
  - Intentional product misuse [Unknown]
  - Decreased appetite [Unknown]
  - Diverticulum [Unknown]
  - Essential hypertension [Unknown]
  - Headache [Recovered/Resolved]
  - Feeling hot [Recovered/Resolved]
  - Proteinuria [Unknown]
  - Fatigue [Unknown]

NARRATIVE: CASE EVENT DATE: 201607
